FAERS Safety Report 7619972-7 (Version None)
Quarter: 2011Q3

REPORT INFORMATION
  Report Type: 
  Country: None (occurrence: None)
  Receive Date: 20110719
  Receipt Date: 20110707
  Transmission Date: 20111222
  Serious: Yes (Hospitalization)
  Sender: FDA-Public Use
  Company Number: US-JNJFOC-20110703057

PATIENT
  Sex: Male
  Weight: 68.9 kg

DRUGS (11)
  1. CAPOTEN [Concomitant]
     Route: 065
  2. PREDNISONE [Suspect]
     Indication: PROSTATE CANCER METASTATIC
     Route: 065
     Dates: start: 20110504
  3. ASPOCID [Concomitant]
     Route: 065
  4. LANOXIN [Concomitant]
     Indication: ATRIAL FIBRILLATION
     Route: 065
     Dates: end: 20110629
  5. MOTILIUM [Concomitant]
     Route: 065
  6. SLOW-K [Concomitant]
     Route: 065
  7. CHLORTETRACYCLINE HCL [Concomitant]
     Indication: DRUG HYPERSENSITIVITY
     Route: 045
  8. DISFLATYL [Concomitant]
     Indication: FLATULENCE
     Route: 065
     Dates: start: 20110629
  9. ABIRATERONE ACETATE [Suspect]
     Route: 048
  10. ABIRATERONE ACETATE [Suspect]
     Indication: PROSTATE CANCER METASTATIC
     Route: 048
     Dates: start: 20110504
  11. BISOPROLOL [Concomitant]
     Route: 065

REACTIONS (4)
  - ATRIAL FIBRILLATION [None]
  - PYREXIA [None]
  - ABDOMINAL PAIN LOWER [None]
  - GASTROENTERITIS [None]
